FAERS Safety Report 7398985-7 (Version None)
Quarter: 2011Q2

REPORT INFORMATION
  Report Type: 
  Country: None (occurrence: None)
  Receive Date: 20110407
  Receipt Date: 20110329
  Transmission Date: 20111010
  Serious: Yes (Hospitalization, Disabling, Other)
  Sender: FDA-Public Use
  Company Number: US-ELI_LILLY_AND_COMPANY-US201104000276

PATIENT
  Sex: Female

DRUGS (3)
  1. CYMBALTA [Suspect]
  2. HUMALOG [Suspect]
     Indication: DIABETES MELLITUS
     Dosage: UNK
     Dates: start: 20080101
  3. LANTUS [Concomitant]
     Dosage: UNK

REACTIONS (7)
  - CARDIAC FAILURE CONGESTIVE [None]
  - ANAEMIA [None]
  - NEUROPATHY PERIPHERAL [None]
  - RENAL FAILURE [None]
  - CORONARY ARTERY OCCLUSION [None]
  - SYSTEMIC LUPUS ERYTHEMATOSUS [None]
  - RENAL TUBULAR NECROSIS [None]
